FAERS Safety Report 25182646 (Version 1)
Quarter: 2025Q2

REPORT INFORMATION
  Report Type: Spontaneous
  Country: FR (occurrence: FR)
  Receive Date: 20250410
  Receipt Date: 20250410
  Transmission Date: 20250717
  Serious: Yes (Hospitalization, Other)
  Sender: RANBAXY
  Company Number: FR-SUN PHARMACEUTICAL INDUSTRIES LTD-2025RR-502712

PATIENT
  Age: 46 Year
  Sex: Female
  Weight: 43.6 kg

DRUGS (8)
  1. IRBESARTAN [Suspect]
     Active Substance: IRBESARTAN
     Indication: Product used for unknown indication
     Route: 048
     Dates: start: 20250114
  2. ACETAMINOPHEN [Suspect]
     Active Substance: ACETAMINOPHEN
     Indication: Pain
     Route: 048
     Dates: start: 20250120, end: 20250122
  3. PANTOPRAZOLE [Suspect]
     Active Substance: PANTOPRAZOLE
     Indication: Gastrooesophageal reflux disease
     Dosage: 1 MORNING
     Route: 048
     Dates: start: 20250127
  4. HYDROXYZINE [Suspect]
     Active Substance: HYDROXYZINE HYDROCHLORIDE
     Indication: Insomnia
     Route: 048
     Dates: start: 20250122
  5. BUPRENORPHINE [Suspect]
     Active Substance: BUPRENORPHINE
     Indication: Drug withdrawal syndrome
     Route: 048
     Dates: start: 20250121
  6. FLUOXETINE [Suspect]
     Active Substance: FLUOXETINE HYDROCHLORIDE
     Indication: Depression
     Route: 048
     Dates: start: 20250120
  7. AMITRIPTYLINE HYDROCHLORIDE [Suspect]
     Active Substance: AMITRIPTYLINE HYDROCHLORIDE
     Indication: Product used for unknown indication
     Route: 048
     Dates: start: 20250119
  8. CHOLECALCIFEROL [Concomitant]
     Active Substance: CHOLECALCIFEROL
     Indication: Vitamin D deficiency
     Route: 048
     Dates: start: 20250118

REACTIONS (1)
  - Hepatitis cholestatic [Not Recovered/Not Resolved]

NARRATIVE: CASE EVENT DATE: 20250127
